FAERS Safety Report 9225413 (Version 1)
Quarter: 2013Q2

REPORT INFORMATION
  Report Type: Spontaneous
  Country: AU (occurrence: AU)
  Receive Date: 20130411
  Receipt Date: 20130411
  Transmission Date: 20140414
  Serious: Yes (Other)
  Sender: FDA-Public Use
  Company Number: AU-ROCHE-1209995

PATIENT
  Age: 61 Year
  Sex: 0

DRUGS (3)
  1. LUCENTIS [Suspect]
     Indication: AGE-RELATED MACULAR DEGENERATION
     Route: 050
     Dates: start: 201001
  2. LUCENTIS [Suspect]
     Route: 050
  3. LUCENTIS [Suspect]
     Route: 050
     Dates: start: 20121219, end: 20121219

REACTIONS (2)
  - Retinal oedema [Unknown]
  - Inappropriate schedule of drug administration [Unknown]
